FAERS Safety Report 4968735-X (Version None)
Quarter: 2006Q2

REPORT INFORMATION
  Report Type: 
  Country: None (occurrence: None)
  Receive Date: 20060405
  Receipt Date: 20060322
  Transmission Date: 20061013
  Serious: Yes (Hospitalization, Other)
  Sender: FDA-Public Use
  Company Number: 2006027371

PATIENT
  Sex: Female

DRUGS (2)
  1. PREPIDIL [Suspect]
     Indication: INDUCED LABOUR
     Dosage: DAILY, VAGINAL
     Route: 067
     Dates: start: 20000125, end: 20000127
  2. OXYTOCIN [Suspect]
     Indication: INDUCED LABOUR
     Dosage: INTRAVENOUS
     Route: 042
     Dates: start: 20000126, end: 20000127

REACTIONS (15)
  - CARDIO-RESPIRATORY ARREST [None]
  - CERVIX DISORDER [None]
  - DEATH NEONATAL [None]
  - DISSEMINATED INTRAVASCULAR COAGULATION [None]
  - DRUG EXPOSURE DURING PREGNANCY [None]
  - EVACUATION OF RETAINED PRODUCTS OF CONCEPTION [None]
  - FORCEPS DELIVERY [None]
  - HAEMOGLOBIN DECREASED [None]
  - HAEMORRHAGE [None]
  - HYPOXIA [None]
  - HYSTERECTOMY [None]
  - METABOLIC ACIDOSIS [None]
  - PLACENTA ACCRETA [None]
  - RENAL FAILURE [None]
  - SHOCK [None]
